FAERS Safety Report 17658959 (Version 2)
Quarter: 2020Q3

REPORT INFORMATION
  Report Type: Other
  Country: US (occurrence: US)
  Receive Date: 20200413
  Receipt Date: 20200915
  Transmission Date: 20201102
  Serious: Yes (Hospitalization, Other)
  Sender: FDA-Public Use
  Company Number: US-ROCHE-2577953

PATIENT
  Sex: Female

DRUGS (16)
  1. OCREVUS [Suspect]
     Active Substance: OCRELIZUMAB
     Dosage: YES
     Route: 065
     Dates: end: 20200331
  2. OCREVUS [Suspect]
     Active Substance: OCRELIZUMAB
     Indication: MULTIPLE SCLEROSIS
     Dosage: YES
     Route: 065
     Dates: start: 20190909
  3. MAGNESIUM [Concomitant]
     Active Substance: MAGNESIUM
  4. CEFDINIR. [Concomitant]
     Active Substance: CEFDINIR
     Indication: URINARY TRACT INFECTION
     Dosage: 10 DAY COURSE AT A TIME ONGOING YES
  5. LORATADINE. [Concomitant]
     Active Substance: LORATADINE
  6. VITAMIN D3 [Concomitant]
     Active Substance: CHOLECALCIFEROL
  7. CELECOXIB. [Concomitant]
     Active Substance: CELECOXIB
  8. CALCIUM [Concomitant]
     Active Substance: CALCIUM
  9. GABAPENTIN. [Concomitant]
     Active Substance: GABAPENTIN
     Dosage: ONGOING YES
  10. METOPROLOL. [Concomitant]
     Active Substance: METOPROLOL
     Dosage: ONGOING YES
  11. AMOXICILLIN. [Concomitant]
     Active Substance: AMOXICILLIN
     Indication: URINARY TRACT INFECTION
     Dosage: 10 DAY COURSE AT A TIME ONGOING YES
  12. STOOL SOFTENER (DOCUSATE) [Concomitant]
     Active Substance: DOCUSATE
  13. DOXYCYCLINE. [Concomitant]
     Active Substance: DOXYCYCLINE
     Dosage: 10 DAY COURSE AT A TIME ONGOING YES
  14. FENTANYL. [Concomitant]
     Active Substance: FENTANYL
     Dosage: 100 UNIT NOT REPORTED
  15. BACLOFEN. [Concomitant]
     Active Substance: BACLOFEN
     Dosage: ONGOING YES
  16. QUETIAPINE. [Concomitant]
     Active Substance: QUETIAPINE
     Dosage: 100MG IN THE MORNING, 200MG AT NIGHT ONGOING YES

REACTIONS (7)
  - Urinary tract infection [Recovered/Resolved]
  - Movement disorder [Not Recovered/Not Resolved]
  - Mobility decreased [Not Recovered/Not Resolved]
  - Emotional distress [Not Recovered/Not Resolved]
  - Coma [Recovered/Resolved]
  - Screaming [Not Recovered/Not Resolved]
  - Blood pressure measurement [Unknown]
